FAERS Safety Report 21550551 (Version 1)
Quarter: 2022Q4

REPORT INFORMATION
  Report Type: Spontaneous
  Country: US (occurrence: US)
  Receive Date: 20221103
  Receipt Date: 20221103
  Transmission Date: 20230112
  Serious: No
  Sender: FDA-Public Use
  Company Number: US-GLAXOSMITHKLINE-USCH2022041577

PATIENT

DRUGS (2)
  1. ABREVA [Suspect]
     Active Substance: DOCOSANOL
     Indication: Skin ulcer
     Dosage: UNK
     Dates: start: 20221021
  2. ABREVA [Suspect]
     Active Substance: DOCOSANOL
     Indication: Skin ulcer
     Dosage: UNK
     Dates: start: 202210

REACTIONS (3)
  - Incorrect product administration duration [Unknown]
  - Drug ineffective for unapproved indication [Unknown]
  - Product use in unapproved indication [Unknown]

NARRATIVE: CASE EVENT DATE: 20221001
